FAERS Safety Report 6048520-0 (Version None)
Quarter: 2009Q1

REPORT INFORMATION
  Report Type: 
  Country: None (occurrence: None)
  Receive Date: 20090123
  Receipt Date: 20090119
  Transmission Date: 20090719
  Serious: Yes (Other)
  Sender: FDA-Public Use
  Company Number: D0060117A

PATIENT
  Age: 67 Year
  Sex: Female
  Weight: 75 kg

DRUGS (6)
  1. TYVERB [Suspect]
     Indication: BREAST CANCER
     Dosage: 1250MG PER DAY
     Route: 048
     Dates: start: 20070419, end: 20081230
  2. PACLITAXEL [Suspect]
     Route: 048
  3. ASPIRIN [Concomitant]
     Indication: THROMBOSIS PROPHYLAXIS
     Dosage: 100MG PER DAY
     Route: 048
  4. KALINOR [Concomitant]
     Indication: ELECTROLYTE SUBSTITUTION THERAPY
     Route: 048
     Dates: end: 20081230
  5. NOVAMINSULFON [Concomitant]
     Indication: PAIN
     Dosage: 500MG THREE TIMES PER DAY
     Route: 048
  6. LOPEDIUM [Concomitant]
     Route: 048
     Dates: start: 20070401

REACTIONS (4)
  - ABDOMINAL PAIN [None]
  - DIARRHOEA [None]
  - GASTROINTESTINAL TOXICITY [None]
  - ORAL FUNGAL INFECTION [None]
